FAERS Safety Report 7811315-9 (Version None)
Quarter: 2011Q4

REPORT INFORMATION
  Report Type: 
  Country: None (occurrence: None)
  Receive Date: 20111013
  Receipt Date: 20111010
  Transmission Date: 20120403
  Serious: Yes (Other)
  Sender: FDA-Public Use
  Company Number: US-ABBOTT-11P-163-0856056-00

PATIENT
  Sex: Female
  Weight: 86.26 kg

DRUGS (1)
  1. LUPRON DEPOT [Suspect]
     Indication: ENDOMETRIOSIS
     Route: 030
     Dates: start: 20110707, end: 20110707

REACTIONS (1)
  - ABORTION INDUCED [None]
